FAERS Safety Report 22003347 (Version 2)
Quarter: 2023Q1

REPORT INFORMATION
  Report Type: Other
  Country: GB (occurrence: GB)
  Receive Date: 20230217
  Receipt Date: 20230228
  Transmission Date: 20230418
  Serious: Yes (Other)
  Sender: FDA-Public Use
  Company Number: GB-MACLEODS PHARMA EU LTD-MAC2023039799

PATIENT

DRUGS (1)
  1. LEVOFLOXACIN [Suspect]
     Active Substance: LEVOFLOXACIN
     Indication: Lower respiratory tract infection
     Dosage: 500 MILLIGRAM
     Route: 065
     Dates: start: 20230125

REACTIONS (9)
  - Spinal pain [Unknown]
  - Breath odour [Unknown]
  - Joint noise [Unknown]
  - Neck pain [Unknown]
  - Medication error [Unknown]
  - Hypoaesthesia [Unknown]
  - Dysgeusia [Unknown]
  - Arthralgia [Unknown]
  - Arthralgia [Not Recovered/Not Resolved]
